FAERS Safety Report 12379623 (Version 2)
Quarter: 2016Q2

REPORT INFORMATION
  Report Type: Report from Study
  Country: CN (occurrence: CN)
  Receive Date: 20160518
  Receipt Date: 20160620
  Transmission Date: 20160815
  Serious: Yes (Death, Other)
  Sender: FDA-Public Use
  Company Number: CN-ROCHE-1759321

PATIENT
  Age: 60 Year
  Sex: Female

DRUGS (1)
  1. ALTEPLASE [Suspect]
     Active Substance: ALTEPLASE
     Indication: PULMONARY EMBOLISM
     Dosage: DOSE: IV BOLUS FOR 10 MIN (50 MG,IV BOLUS
     Route: 042

REACTIONS (3)
  - Incision site haemorrhage [Unknown]
  - Multiple organ dysfunction syndrome [Fatal]
  - Infection [Fatal]
